FAERS Safety Report 9768073 (Version 2)
Quarter: 2014Q1

REPORT INFORMATION
  Report Type: Spontaneous
  Country: US (occurrence: US)
  Receive Date: 20131217
  Receipt Date: 20140102
  Transmission Date: 20141002
  Serious: No
  Sender: FDA-Public Use
  Company Number: US-TEVA-451716USA

PATIENT
  Age: 19 Year
  Sex: Female
  Weight: 54.48 kg

DRUGS (3)
  1. PLAN B ONE-STEP [Suspect]
     Indication: POST COITAL CONTRACEPTION
     Dosage: 1.5 MILLIGRAM DAILY;
     Route: 048
     Dates: start: 20131208, end: 20131208
  2. ALBUTEROL [Concomitant]
     Indication: ASTHMA
  3. ORTHO TRI-CYCLEN LO [Concomitant]
     Indication: CONTRACEPTION

REACTIONS (3)
  - Vaginal discharge [Recovered/Resolved]
  - Menstruation irregular [Not Recovered/Not Resolved]
  - Pelvic pain [Not Recovered/Not Resolved]
